FAERS Safety Report 22527737 (Version 2)
Quarter: 2023Q2

REPORT INFORMATION
  Report Type: Report from Study
  Country: CN (occurrence: CN)
  Receive Date: 20230606
  Receipt Date: 20230609
  Transmission Date: 20230721
  Serious: Yes (Hospitalization, Other)
  Sender: FDA-Public Use
  Company Number: CN-002147023-NVSC2023CN126996

PATIENT
  Age: 74 Year
  Sex: Female
  Weight: 53 kg

DRUGS (7)
  1. FEMARA [Suspect]
     Active Substance: LETROZOLE
     Indication: Breast cancer metastatic
     Dosage: UNK
     Route: 048
     Dates: start: 20230501
  2. FEMARA [Suspect]
     Active Substance: LETROZOLE
     Dosage: UNK
     Route: 048
     Dates: start: 20230508
  3. PALBOCICLIB [Suspect]
     Active Substance: PALBOCICLIB
     Indication: Breast cancer metastatic
     Dosage: 125 MG
     Route: 048
     Dates: start: 20230310
  4. PALBOCICLIB [Suspect]
     Active Substance: PALBOCICLIB
     Dosage: 2.5 MG
     Route: 048
     Dates: start: 20230501
  5. PALBOCICLIB [Suspect]
     Active Substance: PALBOCICLIB
     Dosage: 2.5 MG
     Route: 048
     Dates: start: 20230508
  6. GRANULOCYTE COLONY-STIMULATING FACTOR NOS [Concomitant]
     Active Substance: GRANULOCYTE COLONY-STIMULATING FACTOR NOS
     Indication: Product used for unknown indication
     Dosage: 0.2 MG, QD
     Route: 058
     Dates: start: 20230508
  7. LEVOFLOXACIN [Concomitant]
     Active Substance: LEVOFLOXACIN
     Indication: Antiinflammatory therapy
     Dosage: 0.4 G, QD
     Route: 048

REACTIONS (8)
  - Breath holding [Not Recovered/Not Resolved]
  - Choking [Recovered/Resolved]
  - Cough [Recovered/Resolved]
  - Neutropenia [Recovered/Resolved]
  - Pneumonia [Unknown]
  - Condition aggravated [Unknown]
  - Decreased immune responsiveness [Unknown]
  - Asthma [Unknown]

NARRATIVE: CASE EVENT DATE: 20230501
